FAERS Safety Report 11703038 (Version 7)
Quarter: 2017Q1

REPORT INFORMATION
  Report Type: Spontaneous
  Country: US (occurrence: US)
  Receive Date: 20151105
  Receipt Date: 20170224
  Transmission Date: 20170428
  Serious: Yes (Congenital Anomaly, Other)
  Sender: FDA-Public Use
  Company Number: PHEH2015US022557

PATIENT
  Sex: Male

DRUGS (3)
  1. ZOFRAN [Suspect]
     Active Substance: ONDANSETRON HYDROCHLORIDE
     Indication: FOETAL EXPOSURE DURING PREGNANCY
     Dosage: MOTHER DOSE: 08 MG, EVERY FOUR TO SIX HOURS (Q6H)
     Route: 064
  2. ONDANSETRON [Suspect]
     Active Substance: ONDANSETRON
     Indication: FOETAL EXPOSURE DURING PREGNANCY
     Dosage: MOTHER DOSE: 8 MG, EVERY FOUR TO SIX HOURS DAILY (Q6H)
     Route: 064
  3. ZOFRAN ODT [Suspect]
     Active Substance: ONDANSETRON HYDROCHLORIDE
     Indication: FOETAL EXPOSURE DURING PREGNANCY
     Dosage: MOTHER DOSE: 08 MG, EVERY FOUR TO SIX HOURS (Q6H)
     Route: 064

REACTIONS (25)
  - Congenital anomaly [Unknown]
  - Ventricular septal defect [Unknown]
  - Vomiting [Unknown]
  - Anxiety [Unknown]
  - Hydrocele [Unknown]
  - Foetal exposure during pregnancy [Unknown]
  - Heart disease congenital [Unknown]
  - Atrial septal defect [Unknown]
  - Emotional distress [Unknown]
  - Sinus tachycardia [Unknown]
  - Congenital inguinal hernia [Unknown]
  - Injury [Unknown]
  - Decreased appetite [Unknown]
  - Pyloric stenosis [Unknown]
  - Anhedonia [Unknown]
  - Left-to-right cardiac shunt [Unknown]
  - Otitis media chronic [Unknown]
  - Neonatal tachypnoea [Unknown]
  - Pain [Unknown]
  - Gastrooesophageal reflux disease [Unknown]
  - Eustachian tube dysfunction [Unknown]
  - Multiple congenital abnormalities [Unknown]
  - Anaemia neonatal [Unknown]
  - Cardiac murmur [Unknown]
  - Ear infection [Unknown]
